FAERS Safety Report 6618824-9 (Version None)
Quarter: 2010Q1

REPORT INFORMATION
  Report Type: 
  Country: None (occurrence: None)
  Receive Date: 20100305
  Receipt Date: 20100305
  Transmission Date: 20100710
  Serious: No
  Sender: FDA-Public Use
  Company Number: None

PATIENT
  Age: 49 Year
  Sex: Female
  Weight: 60.782 kg

DRUGS (1)
  1. CEFTIN [Suspect]
     Indication: SINUSITIS
     Dosage: 1 TABLET EVERY 12 HOURS 10 DAYS PO
     Route: 048
     Dates: start: 20100216, end: 20100225

REACTIONS (8)
  - DYSPEPSIA [None]
  - FEELING HOT [None]
  - HEART RATE INCREASED [None]
  - JOINT SWELLING [None]
  - LIP SWELLING [None]
  - OEDEMA PERIPHERAL [None]
  - PAIN IN EXTREMITY [None]
  - SWOLLEN TONGUE [None]
